FAERS Safety Report 6284700-7 (Version None)
Quarter: 2009Q3

REPORT INFORMATION
  Report Type: 
  Country: None (occurrence: None)
  Receive Date: 20090727
  Receipt Date: 20090714
  Transmission Date: 20100115
  Serious: Yes (Other)
  Sender: FDA-Public Use
  Company Number: US-ELI_LILLY_AND_COMPANY-US200907002803

PATIENT
  Sex: Female

DRUGS (7)
  1. CYMBALTA [Suspect]
     Dosage: 60 MG, DAILY (1/D)
     Dates: end: 20090424
  2. REBIF /NET/ [Concomitant]
     Indication: MULTIPLE SCLEROSIS
     Dosage: 44 UG, 3/W
     Route: 058
     Dates: start: 20080305, end: 20090413
  3. GABAPENTIN [Concomitant]
     Dosage: 400 MG, DAILY (1/D)
     Dates: end: 20090424
  4. SYNTHROID [Concomitant]
     Dosage: 1 D/F, DAILY (1/D)
     Dates: end: 20090424
  5. AMBIEN [Concomitant]
     Dosage: 10 MG, EACH EVENING
     Route: 048
     Dates: end: 20090424
  6. DULCOLAX [Concomitant]
     Dosage: 1 D/F, UNK
     Dates: end: 20090424
  7. IBUPROFEN [Concomitant]
     Dosage: 1 D/F, UNK
     Dates: end: 20090424

REACTIONS (2)
  - AUTOIMMUNE HEPATITIS [None]
  - HEPATIC NECROSIS [None]
